FAERS Safety Report 7091281-7 (Version None)
Quarter: 2010Q4

REPORT INFORMATION
  Report Type: 
  Country: None (occurrence: None)
  Receive Date: 20101109
  Receipt Date: 20100915
  Transmission Date: 20110411
  Serious: No
  Sender: FDA-Public Use
  Company Number: US-BAYER-201021631BCC

PATIENT
  Age: 57 Year
  Sex: Female
  Weight: 100 kg

DRUGS (14)
  1. ALEVE (CAPLET) [Suspect]
     Indication: PAIN IN EXTREMITY
     Dosage: TOTAL DAILY DOSE: 440 MG  UNIT DOSE: 220 MG
     Route: 048
     Dates: start: 20100910
  2. ASPIRIN [Concomitant]
  3. ISOSORBIDE MONONITRATE [Concomitant]
  4. LOVASTATIN [Concomitant]
  5. CARBIDOPA AND LEVODOPA [Concomitant]
  6. LAMOTRIGINE [Concomitant]
  7. LEVOTHYROXINE SODIUM [Concomitant]
  8. LIDODERM [Concomitant]
  9. METOPROLOL [Concomitant]
  10. LATRAVOLAM [Concomitant]
  11. LOVAZA [Concomitant]
  12. RISPERIDONE [Concomitant]
  13. ESTROBLEND [Concomitant]
  14. BUPROPION HCL [Concomitant]

REACTIONS (1)
  - PAIN IN EXTREMITY [None]
